FAERS Safety Report 11815713 (Version 1)
Quarter: 2015Q4

REPORT INFORMATION
  Report Type: Spontaneous
  Country: IT (occurrence: IT)
  Receive Date: 20151209
  Receipt Date: 20151209
  Transmission Date: 20160305
  Serious: Yes (Hospitalization)
  Sender: FDA-Public Use
  Company Number: IT-BAYER-2015-484362

PATIENT
  Age: 62 Year
  Sex: Male

DRUGS (1)
  1. ASPIRINA [Suspect]
     Active Substance: ASPIRIN
     Indication: INFLUENZA LIKE ILLNESS
     Dosage: 500 MG, UNK
     Route: 048
     Dates: start: 20151116, end: 20151117

REACTIONS (3)
  - Erosive oesophagitis [Recovering/Resolving]
  - Gastric ulcer [Recovering/Resolving]
  - Haemorrhage [Recovering/Resolving]

NARRATIVE: CASE EVENT DATE: 20151118
